FAERS Safety Report 17945896 (Version 1)
Quarter: 2020Q2

REPORT INFORMATION
  Report Type: Spontaneous
  Country: FR (occurrence: FR)
  Receive Date: 20200625
  Receipt Date: 20200625
  Transmission Date: 20200714
  Serious: Yes (Other)
  Sender: FDA-Public Use
  Company Number: NVSC2020FR173824

PATIENT
  Age: 7 Year
  Sex: Male
  Weight: 27 kg

DRUGS (13)
  1. POLARAMINE [Concomitant]
     Active Substance: DEXCHLORPHENIRAMINE MALEATE
     Indication: PREMEDICATION
     Dosage: 7.5 MG, QD (3X/DAY)
     Route: 042
     Dates: start: 20190520
  2. LANSOPRAZOLE. [Concomitant]
     Active Substance: LANSOPRAZOLE
     Dosage: 15 MG, DAILY
     Route: 048
     Dates: start: 20190616
  3. METHYLPREDNISOLONE. [Concomitant]
     Active Substance: METHYLPREDNISOLONE
     Indication: PREMEDICATION
     Dosage: 25 MG, QD (1X/DAY)
     Route: 042
     Dates: start: 20190520
  4. PARACETAMOL [Concomitant]
     Active Substance: ACETAMINOPHEN
     Dosage: 300 MG, CYCLIC (SIX TIMES PER DAY )
     Route: 065
     Dates: start: 20190531
  5. METHYLPREDNISOLONE. [Concomitant]
     Active Substance: METHYLPREDNISOLONE
     Dosage: 25 MG, QD (1X/DAY)
     Route: 042
     Dates: start: 20190523
  6. ATGAM [Suspect]
     Active Substance: EQUINE THYMOCYTE IMMUNE GLOBULIN
     Indication: BONE MARROW FAILURE
     Dosage: 40 MG/KG, QD (DAILY TOTAL DOSE 440 MG)
     Route: 042
     Dates: start: 20190520
  7. PANTOPRAZOLE [Concomitant]
     Active Substance: PANTOPRAZOLE
     Dosage: 15 MG, QD (1X/DAY)
     Route: 042
     Dates: start: 20190616
  8. CYCLOSPORINE. [Suspect]
     Active Substance: CYCLOSPORINE
     Indication: BONE MARROW FAILURE
     Dosage: UNK (2.5-5 MG/KG (^TR 200^; PLANNED DOSAGE)
     Route: 065
  9. ATGAM [Suspect]
     Active Substance: EQUINE THYMOCYTE IMMUNE GLOBULIN
     Dosage: 40 MG/KG, QD (DAILY TOTAL DOSE 440 MG)
     Route: 042
     Dates: start: 20190523
  10. POLARAMINE [Concomitant]
     Active Substance: DEXCHLORPHENIRAMINE MALEATE
     Dosage: 7.5 MG, QD (3X/DAY)
     Route: 042
     Dates: start: 20190523
  11. LANSOPRAZOLE. [Concomitant]
     Active Substance: LANSOPRAZOLE
     Indication: PROPHYLAXIS
     Dosage: 15 MG, DAILY
     Route: 048
     Dates: start: 20190520
  12. PARACETAMOL [Concomitant]
     Active Substance: ACETAMINOPHEN
     Indication: PREMEDICATION
     Dosage: 300 MG, CYCLIC (SIX TIMES PER DAY)
     Route: 065
     Dates: start: 20190520
  13. PANTOPRAZOLE [Concomitant]
     Active Substance: PANTOPRAZOLE
     Indication: PROPHYLAXIS
     Dosage: 15 MG, QD (1X/DAY)
     Route: 042
     Dates: start: 20190520

REACTIONS (2)
  - Infusion related reaction [Recovered/Resolved]
  - Urticaria [Recovered/Resolved]

NARRATIVE: CASE EVENT DATE: 20190520
